FAERS Safety Report 5072252-9 (Version None)
Quarter: 2006Q3

REPORT INFORMATION
  Report Type: 
  Country: None (occurrence: None)
  Receive Date: 20060710
  Receipt Date: 20051209
  Transmission Date: 20061208
  Serious: Yes (Hospitalization)
  Sender: FDA-Public Use
  Company Number: PHEH2005US07956

PATIENT
  Sex: Female

DRUGS (1)
  1. GLEEVEC [Suspect]
     Indication: LEIOMYOSARCOMA
     Dosage: 400 MG, QD, ORAL
     Route: 048

REACTIONS (4)
  - METASTASES TO LUNG [None]
  - PULMONARY FIBROSIS [None]
  - PULMONARY OEDEMA [None]
  - RESPIRATORY DISTRESS [None]
